FAERS Safety Report 4347673-X (Version None)
Quarter: 2004Q2

REPORT INFORMATION
  Report Type: 
  Country: None (occurrence: None)
  Receive Date: 20040422
  Receipt Date: 20040402
  Transmission Date: 20050107
  Serious: Yes (Other)
  Sender: FDA-Public Use
  Company Number: USA040463970

PATIENT
  Age: 49 Year
  Sex: Male

DRUGS (2)
  1. HUMULIN N [Suspect]
     Indication: DIABETES MELLITUS
     Dates: start: 19860101
  2. HUMULIN R [Suspect]
     Indication: DIABETES MELLITUS
     Dates: start: 19860101

REACTIONS (4)
  - DIALYSIS [None]
  - ERECTILE DYSFUNCTION [None]
  - HYPERCHLORHYDRIA [None]
  - HYPERTENSION [None]
